FAERS Safety Report 20546448 (Version 1)
Quarter: 2022Q1

REPORT INFORMATION
  Report Type: Spontaneous
  Country: US (occurrence: US)
  Receive Date: 20220303
  Receipt Date: 20220303
  Transmission Date: 20220423
  Serious: Yes (Other)
  Sender: FDA-Public Use
  Company Number: US-BAYER-2022A031727

PATIENT
  Sex: Female

DRUGS (1)
  1. MIRENA [Suspect]
     Active Substance: LEVONORGESTREL
     Dosage: 20?G/DAY
     Route: 015
     Dates: start: 2009

REACTIONS (10)
  - Pregnancy with contraceptive device [None]
  - Drug ineffective [None]
  - Hormone level abnormal [None]
  - Migraine [None]
  - Menstruation irregular [None]
  - Photophobia [None]
  - Asthenia [None]
  - Malaise [None]
  - Fatigue [None]
  - Iron deficiency [None]

NARRATIVE: CASE EVENT DATE: 20120101
